FAERS Safety Report 23610492 (Version 1)
Quarter: 2024Q1

REPORT INFORMATION
  Report Type: Spontaneous
  Country: CA (occurrence: CA)
  Receive Date: 20240308
  Receipt Date: 20240308
  Transmission Date: 20240409
  Serious: Yes (Life-Threatening, Hospitalization)
  Sender: FDA-Public Use
  Company Number: CA-TEVA-VS-3165298

PATIENT
  Sex: Male

DRUGS (17)
  1. METHOTREXATE [Suspect]
     Active Substance: METHOTREXATE
     Indication: Skin disorder
     Dosage: DOSE FORM: NOT SPECIFIED
     Route: 065
  2. BISOPROLOL [Concomitant]
     Active Substance: BISOPROLOL\BISOPROLOL FUMARATE
     Route: 065
  3. DOXAZOSIN [Concomitant]
     Active Substance: DOXAZOSIN MESYLATE
     Route: 065
  4. METFORMIN [Concomitant]
     Active Substance: METFORMIN HYDROCHLORIDE
     Route: 065
  5. PREDNISONE [Concomitant]
     Active Substance: PREDNISONE
     Dosage: DOSE FORM: NOT SPECIFIED
     Route: 065
  6. RAMIPRIL [Concomitant]
     Active Substance: RAMIPRIL
     Dosage: DOSE FORM: NOT SPECIFIED
     Route: 065
  7. ROSUVASTATIN [Concomitant]
     Active Substance: ROSUVASTATIN
     Dosage: DOSE FORM: NOT SPECIFIED
     Route: 058
  8. ALBUTEROL [Concomitant]
     Active Substance: ALBUTEROL
     Dosage: DOSE FORM: NOT SPECIFIED
     Route: 065
  9. SITAGLIPTIN [Concomitant]
     Active Substance: SITAGLIPTIN
     Dosage: DOSE FORM: NOT SPECIFIED
     Route: 065
  10. TAMSULOSIN [Concomitant]
     Active Substance: TAMSULOSIN
     Dosage: DOSE FORM: TABLET (EXTENDED- RELEASE)
     Route: 065
  11. WELLBUTRIN XL [Concomitant]
     Active Substance: BUPROPION HYDROCHLORIDE
  12. FLUCONAZOLE [Concomitant]
     Active Substance: FLUCONAZOLE
     Dosage: DOSE FORM: NOT SPECIFIED
     Route: 065
  13. FOLIC ACID [Concomitant]
     Active Substance: FOLIC ACID
  14. GABAPENTIN [Concomitant]
     Active Substance: GABAPENTIN
     Dosage: DOSE FORM: NOT SPECIFIED
     Route: 065
  15. HYDROCHLOROTHIAZIDE [Concomitant]
     Active Substance: HYDROCHLOROTHIAZIDE
     Route: 065
  16. HYDROMORPHONE [Concomitant]
     Active Substance: HYDROMORPHONE
     Dosage: DOSE FORM: NOT SPECIFIED
     Route: 065
  17. K-DUR [Concomitant]
     Active Substance: POTASSIUM CHLORIDE
     Dosage: DOSE FORM: TABLET (EXTENDED- RELEASE)
     Route: 065

REACTIONS (6)
  - Acute kidney injury [Unknown]
  - Febrile neutropenia [Unknown]
  - Liver function test increased [Unknown]
  - Oral pain [Unknown]
  - Pancytopenia [Unknown]
  - Toxicity to various agents [Unknown]
